FAERS Safety Report 9133441 (Version 1)
Quarter: 2013Q1

REPORT INFORMATION
  Report Type: Spontaneous
  Country: US (occurrence: US)
  Receive Date: 20130128
  Receipt Date: 20130128
  Transmission Date: 20140127
  Serious: Yes (Hospitalization, Disabling, Other)
  Sender: FDA-Public Use
  Company Number: US-ASTRAZENECA-2013SE04253

PATIENT
  Sex: Male

DRUGS (6)
  1. CRESTOR [Suspect]
     Indication: BLOOD CHOLESTEROL INCREASED
     Route: 048
     Dates: start: 201209, end: 201210
  2. ZOCOR [Suspect]
     Indication: BLOOD CHOLESTEROL INCREASED
     Route: 065
     Dates: start: 2010
  3. ZOCOR [Suspect]
     Indication: BLOOD CHOLESTEROL INCREASED
     Dosage: SIMVASTATIN FROM TEVA PHARMACEUTICALS
     Route: 065
     Dates: start: 20120823, end: 201209
  4. DILTIAZEM [Concomitant]
  5. ISOSORBIDE [Concomitant]
  6. OMEPRAZOLE [Concomitant]

REACTIONS (7)
  - Myalgia [Recovering/Resolving]
  - Thrombosis [Not Recovered/Not Resolved]
  - Vascular rupture [Unknown]
  - Local swelling [Unknown]
  - Contusion [Unknown]
  - Gait disturbance [Unknown]
  - Varicose vein [Unknown]
